FAERS Safety Report 7056556-6 (Version None)
Quarter: 2010Q4

REPORT INFORMATION
  Report Type: 
  Country: None (occurrence: None)
  Receive Date: 20101018
  Receipt Date: 20101007
  Transmission Date: 20110411
  Serious: Yes (Hospitalization)
  Sender: FDA-Public Use
  Company Number: 2010JP005207

PATIENT
  Age: 73 Year
  Sex: Male
  Weight: 70 kg

DRUGS (4)
  1. VESICARE [Suspect]
     Indication: HYPERTONIC BLADDER
     Dosage: 5 MG, UID/QD, ORAL
     Route: 048
     Dates: start: 20100812, end: 20100816
  2. FLIVAS (NAFTOPIDIL) PER ORAL NOS [Suspect]
     Indication: BENIGN PROSTATIC HYPERPLASIA
     Dosage: 50 MG, UID/QD, ORAL
     Route: 048
     Dates: start: 20100812, end: 20100816
  3. DEPAKENE [Concomitant]
  4. PHENYTOIN [Concomitant]

REACTIONS (4)
  - CHOLECYSTITIS [None]
  - MUSCULAR WEAKNESS [None]
  - PANCREATIC ENZYMES INCREASED [None]
  - PYREXIA [None]
